FAERS Safety Report 8595203-9 (Version None)
Quarter: 2012Q3

REPORT INFORMATION
  Report Type: 
  Country: None (occurrence: None)
  Receive Date: 20120807
  Receipt Date: 20120807
  Transmission Date: 20120928
  Serious: Yes (Hospitalization)
  Sender: FDA-Public Use
  Company Number: None

PATIENT
  Sex: Male
  Weight: 102.1 kg

DRUGS (3)
  1. BEVACIZUMAB (RHUMAB VEGF) [Suspect]
     Dosage: 1500 MG
  2. CARBOPLATIN [Suspect]
     Dosage: 836 MG
  3. TAXOL [Suspect]
     Dosage: 380 MG

REACTIONS (4)
  - DYSPNOEA [None]
  - FATIGUE [None]
  - ASTHENIA [None]
  - OXYGEN SATURATION DECREASED [None]
